FAERS Safety Report 16745164 (Version 1)
Quarter: 2019Q3

REPORT INFORMATION
  Report Type: Spontaneous
  Country: US (occurrence: US)
  Receive Date: 20190827
  Receipt Date: 20190827
  Transmission Date: 20191005
  Serious: No
  Sender: FDA-Public Use
  Company Number: US-PFIZER INC-2019358854

PATIENT
  Sex: Male

DRUGS (1)
  1. NAVANE [Suspect]
     Active Substance: THIOTHIXENE
     Dosage: UNK

REACTIONS (3)
  - Tardive dyskinesia [Unknown]
  - Joint dislocation [Unknown]
  - Erectile dysfunction [Unknown]
